FAERS Safety Report 16790738 (Version 1)
Quarter: 2019Q3

REPORT INFORMATION
  Report Type: Spontaneous
  Country: US (occurrence: US)
  Receive Date: 20190910
  Receipt Date: 20190910
  Transmission Date: 20191005
  Serious: No
  Sender: FDA-Public Use
  Company Number: US-PFIZER INC-2019389669

PATIENT
  Age: 60 Year
  Sex: Female

DRUGS (1)
  1. IBRANCE [Suspect]
     Active Substance: PALBOCICLIB
     Indication: BREAST CANCER FEMALE
     Dosage: 125 MG, CYCLIC [IBRANCE 125MG CAPSULE-TAKE 1 CAPSULE BY MOUTH DAILY FOR 21 DAYS, THEN OFF FOR 7DAYS]
     Route: 048
     Dates: start: 20190814

REACTIONS (1)
  - Vomiting [Unknown]
